FAERS Safety Report 9890615 (Version 1)
Quarter: 2014Q1

REPORT INFORMATION
  Report Type: Spontaneous
  Country: US (occurrence: None)
  Receive Date: 20140207
  Receipt Date: 20140207
  Transmission Date: 20141002
  Serious: Yes (Death)
  Sender: FDA-Public Use
  Company Number: SYM-2014-15627

PATIENT
  Age: 50 Year
  Sex: Female

DRUGS (2)
  1. DILTIAZEM (EXTENDED RELEASE) [Suspect]
     Indication: PRODUCT USED FOR UNKNOWN INDICATION
     Route: 048
  2. AMLODIPINE (AMLODIPINE) (AMLODIPINE) [Suspect]
     Indication: PRODUCT USED FOR UNKNOWN INDICATION
     Route: 048

REACTIONS (14)
  - Retching [None]
  - Hypotension [None]
  - Bradycardia [None]
  - Vomiting [None]
  - Unresponsive to stimuli [None]
  - Blood pressure decreased [None]
  - Hyperkalaemia [None]
  - Intentional overdose [None]
  - Completed suicide [None]
  - Pupillary reflex impaired [None]
  - Blood glucose increased [None]
  - White blood cell count increased [None]
  - Blood urea increased [None]
  - Respiratory depression [None]
